FAERS Safety Report 14511594 (Version 1)
Quarter: 2018Q1

REPORT INFORMATION
  Report Type: Spontaneous
  Country: US (occurrence: US)
  Receive Date: 20180209
  Receipt Date: 20180209
  Transmission Date: 20180509
  Serious: No
  Sender: FDA-Public Use
  Company Number: US-ENDO PHARMACEUTICALS INC-2017-005405

PATIENT
  Sex: Male
  Weight: 79.37 kg

DRUGS (3)
  1. ROSUVASTATIN. [Concomitant]
     Active Substance: ROSUVASTATIN
     Indication: BLOOD CHOLESTEROL INCREASED
     Dosage: 40 MG, DAILY
     Route: 065
  2. TESTOSTERONE GEL [Suspect]
     Active Substance: TESTOSTERONE
     Indication: BLOOD TESTOSTERONE DECREASED
     Dosage: 1 PUMP (10 MG) PER DAY
     Route: 062
     Dates: start: 201703, end: 201709
  3. TESTOSTERONE GEL [Suspect]
     Active Substance: TESTOSTERONE
     Dosage: ONE AND ONE-HALF PUMPS (15 MG) DAILY
     Route: 062
     Dates: start: 201709

REACTIONS (4)
  - Blood testosterone decreased [Recovered/Resolved]
  - Blood testosterone increased [Unknown]
  - Wrong technique in product usage process [Unknown]
  - Haematocrit decreased [Unknown]

NARRATIVE: CASE EVENT DATE: 2017
